FAERS Safety Report 6260536-8 (Version None)
Quarter: 2009Q2

REPORT INFORMATION
  Report Type: 
  Country: None (occurrence: None)
  Receive Date: 20090615
  Receipt Date: 20090608
  Transmission Date: 20091009
  Serious: Yes (Life-Threatening)
  Sender: FDA-Public Use
  Company Number: AEGBR200900176

PATIENT
  Age: 62 Year
  Sex: Male

DRUGS (1)
  1. IGIV (MANUFACTURER UNKNOWN) [Suspect]
     Dosage: IV
     Route: 042

REACTIONS (1)
  - CEREBROVASCULAR ACCIDENT [None]
